FAERS Safety Report 5474662-4 (Version None)
Quarter: 2007Q3

REPORT INFORMATION
  Report Type: 
  Country: None (occurrence: None)
  Receive Date: 20070831
  Receipt Date: 20070102
  Transmission Date: 20080115
  Serious: Yes (Life-Threatening)
  Sender: FDA-Public Use
  Company Number: 259643

PATIENT
  Age: 58 Year
  Sex: Male

DRUGS (5)
  1. NOVOLIN N [Suspect]
     Indication: TYPE 1 DIABETES MELLITUS
     Dosage: SUBCUTANEOUS, 66 IU, QD, SUBCUTANEOUS
     Route: 058
     Dates: start: 20030101, end: 20060101
  2. NOVOLIN N [Suspect]
     Indication: TYPE 1 DIABETES MELLITUS
     Dosage: SUBCUTANEOUS, 66 IU, QD, SUBCUTANEOUS
     Route: 058
     Dates: start: 20030101, end: 20060101
  3. LISINOPRIL [Concomitant]
  4. SYNTHROID [Concomitant]
  5. ZOCOR [Concomitant]

REACTIONS (1)
  - HYPOGLYCAEMIC UNCONSCIOUSNESS [None]
